FAERS Safety Report 20153207 (Version 1)
Quarter: 2021Q4

REPORT INFORMATION
  Report Type: Other
  Country: None (occurrence: US)
  Receive Date: 20211206
  Receipt Date: 20211206
  Transmission Date: 20220303
  Serious: Yes (Hospitalization)
  Sender: FDA-Public Use
  Company Number: US-ALSI-2021000420

PATIENT
  Age: 45 Year
  Sex: Male

DRUGS (1)
  1. NITROUS OXIDE [Suspect]
     Active Substance: NITROUS OXIDE
     Indication: Product used for unknown indication
     Route: 055

REACTIONS (3)
  - Myelopathy [Recovered/Resolved]
  - Vitamin B12 deficiency [Recovered/Resolved]
  - Drug abuse [Recovered/Resolved]
